FAERS Safety Report 12167133 (Version 1)
Quarter: 2016Q1

REPORT INFORMATION
  Report Type: Spontaneous
  Country: AU (occurrence: AU)
  Receive Date: 20160310
  Receipt Date: 20160310
  Transmission Date: 20160526
  Serious: Yes (Hospitalization, Other)
  Sender: FDA-Public Use
  Company Number: AU-DRREDDYS-USA/AUS/16/0055781

PATIENT
  Age: 19 Year
  Sex: Female

DRUGS (17)
  1. SEVOFLURANE. [Concomitant]
     Active Substance: SEVOFLURANE
     Indication: GENERAL ANAESTHESIA
     Route: 065
  2. FENTANYL. [Interacting]
     Active Substance: FENTANYL
     Indication: GENERAL ANAESTHESIA
     Route: 042
  3. FENTANYL. [Interacting]
     Active Substance: FENTANYL
     Route: 042
  4. PANTOPRAZOLE [Concomitant]
     Active Substance: PANTOPRAZOLE SODIUM
     Indication: PRODUCT USED FOR UNKNOWN INDICATION
     Route: 065
  5. MIDAZOLAM [Concomitant]
     Active Substance: MIDAZOLAM\MIDAZOLAM HYDROCHLORIDE
     Indication: GENERAL ANAESTHESIA
     Route: 065
  6. CITALOPRAM [Suspect]
     Active Substance: CITALOPRAM HYDROBROMIDE
     Indication: DEPRESSION
     Route: 065
  7. PROPOFOL. [Concomitant]
     Active Substance: PROPOFOL
     Indication: GENERAL ANAESTHESIA
     Route: 065
  8. PARECOXIB [Concomitant]
     Active Substance: PARECOXIB
     Indication: PRODUCT USED FOR UNKNOWN INDICATION
     Route: 065
  9. ONDANSETRON [Concomitant]
     Active Substance: ONDANSETRON
     Indication: PRODUCT USED FOR UNKNOWN INDICATION
     Route: 065
  10. BUPIVACAINE [Concomitant]
     Active Substance: BUPIVACAINE
     Indication: PRODUCT USED FOR UNKNOWN INDICATION
     Route: 065
  11. FENTANYL. [Interacting]
     Active Substance: FENTANYL
     Route: 042
  12. AMITRIPTYLINE [Interacting]
     Active Substance: AMITRIPTYLINE
     Indication: DEPRESSION
     Route: 065
  13. CEFAZOLIN [Concomitant]
     Active Substance: CEFAZOLIN
     Indication: PRODUCT USED FOR UNKNOWN INDICATION
     Route: 042
  14. ROCURONIUM [Concomitant]
     Active Substance: ROCURONIUM BROMIDE
     Indication: PRODUCT USED FOR UNKNOWN INDICATION
     Route: 065
  15. ROCURONIUM [Concomitant]
     Active Substance: ROCURONIUM BROMIDE
     Route: 065
  16. PROPOFOL. [Concomitant]
     Active Substance: PROPOFOL
     Route: 065
  17. DEXAMETHASONE. [Concomitant]
     Active Substance: DEXAMETHASONE
     Indication: PRODUCT USED FOR UNKNOWN INDICATION
     Route: 065

REACTIONS (3)
  - Drug interaction [Unknown]
  - Hypoxia [Recovered/Resolved]
  - Toxicity to various agents [Recovered/Resolved]
